FAERS Safety Report 6952808-6 (Version None)
Quarter: 2010Q3

REPORT INFORMATION
  Report Type: 
  Country: None (occurrence: None)
  Receive Date: 20100829
  Receipt Date: 20100514
  Transmission Date: 20110219
  Serious: No
  Sender: FDA-Public Use
  Company Number: US-ABBOTT-10P-163-0645590-00

PATIENT
  Age: 80 Year
  Sex: Female

DRUGS (3)
  1. NIASPAN [Suspect]
     Indication: BLOOD CHOLESTEROL INCREASED
     Route: 048
  2. OMEPRAZOLE [Concomitant]
     Indication: GASTROOESOPHAGEAL REFLUX DISEASE
  3. LABETALOL HCL [Concomitant]
     Indication: HYPERTENSION

REACTIONS (3)
  - COELIAC DISEASE [None]
  - DERMATITIS HERPETIFORMIS [None]
  - HOT FLUSH [None]
